FAERS Safety Report 7903568-3 (Version None)
Quarter: 2011Q4

REPORT INFORMATION
  Report Type: 
  Country: None (occurrence: None)
  Receive Date: 20111109
  Receipt Date: 20111109
  Transmission Date: 20120403
  Serious: No
  Sender: FDA-Public Use
  Company Number: None

PATIENT
  Age: 58 Year
  Sex: Female

DRUGS (1)
  1. ISOVUE-370 [Suspect]
     Indication: CATHETERISATION CARDIAC
     Route: 042
     Dates: start: 20111103, end: 20111103

REACTIONS (1)
  - NAUSEA [None]
